FAERS Safety Report 8369920-X (Version None)
Quarter: 2012Q1

REPORT INFORMATION
  Report Type: 
  Country: None (occurrence: None)
  Receive Date: 20120323
  Receipt Date: 20110817
  Transmission Date: 20120608
  Serious: Yes (Hospitalization)
  Sender: FDA-Public Use
  Company Number: 163-21880-11070814

PATIENT
  Age: 63 Year
  Sex: Female

DRUGS (22)
  1. OMEPRAZOLE [Concomitant]
  2. TRAZODONE HCL [Concomitant]
  3. LORAZEPAM [Concomitant]
  4. COUMADIN [Concomitant]
  5. PREDNISONE TAB [Concomitant]
  6. DOXIL [Concomitant]
  7. CALCIUM CARBONATE [Concomitant]
  8. ONDANSETRON [Concomitant]
  9. VELCADE [Concomitant]
  10. DEXAMETHASONE [Concomitant]
  11. DOCUSATE SODIUM (DOCUSATE SODIUM) [Concomitant]
  12. FLUCONAZOLE [Concomitant]
  13. FLUOXETINE [Concomitant]
  14. REVLIMID [Suspect]
     Indication: MULTIPLE MYELOMA
     Dosage: 25 MG, DAILY X 21 DAYS, PO, 10 MG, 1 IN 1 D, PO
     Route: 048
     Dates: start: 20100701, end: 20110501
  15. REVLIMID [Suspect]
     Indication: MULTIPLE MYELOMA
     Dosage: 25 MG, DAILY X 21 DAYS, PO, 10 MG, 1 IN 1 D, PO
     Route: 048
     Dates: start: 20100412, end: 20100101
  16. ACYCLOVIR [Concomitant]
  17. CIPROFLOXACIN [Concomitant]
  18. NEURONTIN [Concomitant]
  19. DILAUDID [Concomitant]
  20. MELPHALAN HYDROCHLORIDE [Concomitant]
  21. GLUTAMINE (LEVOGLUTAMIDE) [Concomitant]
  22. LOPERAMIDE [Concomitant]

REACTIONS (3)
  - PULMONARY EMBOLISM [None]
  - DEEP VEIN THROMBOSIS [None]
  - TOXICITY TO VARIOUS AGENTS [None]
